FAERS Safety Report 19519639 (Version 1)
Quarter: 2021Q3

REPORT INFORMATION
  Report Type: Spontaneous
  Country: FR (occurrence: FR)
  Receive Date: 20210712
  Receipt Date: 20210712
  Transmission Date: 20211014
  Serious: Yes (Other)
  Sender: FDA-Public Use
  Company Number: FR-ACCORD-231304

PATIENT
  Age: 9 Year
  Sex: Female

DRUGS (7)
  1. ZOPHREN [Suspect]
     Active Substance: ONDANSETRON
     Indication: PREMEDICATION
     Dosage: STRENGTH 8 MG
     Route: 048
     Dates: start: 20210510, end: 20210510
  2. OLANZAPINE. [Suspect]
     Active Substance: OLANZAPINE
     Indication: PREMEDICATION
     Route: 048
     Dates: start: 20210510, end: 20210510
  3. ETOPOSIDE. [Suspect]
     Active Substance: ETOPOSIDE
     Indication: PANCREATOBLASTOMA
     Route: 042
     Dates: start: 20210510, end: 20210510
  4. IFOSFAMIDE. [Suspect]
     Active Substance: IFOSFAMIDE
     Indication: PANCREATOBLASTOMA
     Route: 042
     Dates: start: 20210512, end: 20210512
  5. DEXAMETHASONE. [Suspect]
     Active Substance: DEXAMETHASONE
     Indication: PREMEDICATION
     Dosage: 30 MG IF NAUSEA
     Route: 042
     Dates: start: 20210510, end: 20210510
  6. EMEND [Suspect]
     Active Substance: APREPITANT
     Indication: PREMEDICATION
     Dates: start: 20210510, end: 20210510
  7. PLITICAN [Suspect]
     Active Substance: ALIZAPRIDE HYDROCHLORIDE
     Indication: PREMEDICATION
     Dosage: 30 MG IF NAUSEA
     Route: 042
     Dates: start: 20210510, end: 20210510

REACTIONS (2)
  - Pyrexia [Recovered/Resolved]
  - Aplasia [Not Recovered/Not Resolved]

NARRATIVE: CASE EVENT DATE: 20210512
